FAERS Safety Report 4843837-7 (Version None)
Quarter: 2005Q4

REPORT INFORMATION
  Report Type: 
  Country: None (occurrence: None)
  Receive Date: 20051202
  Receipt Date: 20050920
  Transmission Date: 20060501
  Serious: Yes (Other)
  Sender: FDA-Public Use
  Company Number: DE-GLAXOSMITHKLINE-D0047551A

PATIENT
  Age: 69 Year
  Sex: Female
  Weight: 70 kg

DRUGS (5)
  1. AVANDAMET [Suspect]
     Dosage: 1004MG TWICE PER DAY
     Route: 048
     Dates: start: 20050301, end: 20051001
  2. PROVASIN TAB [Concomitant]
     Indication: HYPERTENSION
     Route: 065
  3. BELOC ZOK MITE [Concomitant]
     Indication: HYPERTENSION
     Route: 065
  4. BELOC ZOK COMP [Concomitant]
     Indication: HYPERTENSION
     Route: 065
  5. MOBIC [Concomitant]
     Indication: ARTHRITIS
     Dosage: 7.5U PER DAY
     Route: 065
     Dates: start: 20050501, end: 20050701

REACTIONS (2)
  - ABDOMINAL SYMPTOM [None]
  - MICROCYTIC ANAEMIA [None]
